FAERS Safety Report 4951219-2 (Version None)
Quarter: 2006Q1

REPORT INFORMATION
  Report Type: 
  Country: None (occurrence: None)
  Receive Date: 20060313
  Receipt Date: 20060306
  Transmission Date: 20060701
  Serious: Yes (Hospitalization)
  Sender: FDA-Public Use
  Company Number: 200513963BCC

PATIENT
  Age: 44 Year
  Sex: Female
  Weight: 112.0385 kg

DRUGS (12)
  1. ALEVE [Suspect]
     Indication: BACK PAIN
     Dosage: SEE IMAGE
     Route: 048
     Dates: start: 20050930
  2. ALEVE [Suspect]
     Indication: PAIN IN EXTREMITY
     Dosage: SEE IMAGE
     Route: 048
     Dates: start: 20050930
  3. ALEVE [Suspect]
     Indication: BACK PAIN
     Dosage: SEE IMAGE
     Route: 048
     Dates: start: 20051002
  4. ALEVE [Suspect]
     Indication: PAIN IN EXTREMITY
     Dosage: SEE IMAGE
     Route: 048
     Dates: start: 20051002
  5. GLUCOVANCE [Concomitant]
  6. NORVASC [Concomitant]
  7. UNIVASC [Concomitant]
  8. HYDROCHLOROTHIAZIDE [Concomitant]
  9. CELEXA [Concomitant]
  10. ZETIA [Concomitant]
  11. LEVOXYL [Concomitant]
  12. PROP-N/APAP [Concomitant]

REACTIONS (8)
  - GINGIVAL DISORDER [None]
  - INDURATION [None]
  - MOUTH HAEMORRHAGE [None]
  - OEDEMA MOUTH [None]
  - ORAL PAIN [None]
  - ORAL SOFT TISSUE DISORDER [None]
  - STOMATITIS [None]
  - VIRAL INFECTION [None]
